FAERS Safety Report 8311500-6 (Version None)
Quarter: 2012Q2

REPORT INFORMATION
  Report Type: 
  Country: None (occurrence: None)
  Receive Date: 20120425
  Receipt Date: 20120417
  Transmission Date: 20120825
  Serious: Yes (Congenital Anomaly)
  Sender: FDA-Public Use
  Company Number: DE-TEVA-333749GER

PATIENT
  Age: 0 Year
  Sex: Female
  Weight: 74 kg

DRUGS (1)
  1. LAMOTRGINE [Suspect]
     Route: 064
     Dates: start: 20090813

REACTIONS (2)
  - ATRIAL SEPTAL DEFECT [None]
  - BICUSPID AORTIC VALVE [None]
